FAERS Safety Report 17228609 (Version 1)
Quarter: 2020Q1

REPORT INFORMATION
  Report Type: Report from Study
  Country: CA (occurrence: CA)
  Receive Date: 20200103
  Receipt Date: 20200103
  Transmission Date: 20200409
  Serious: Yes (Hospitalization)
  Sender: FDA-Public Use
  Company Number: CA-TAKEDA-2019TUS074384

PATIENT
  Age: 77 Year
  Sex: Male

DRUGS (3)
  1. IXAZOMIB [Suspect]
     Active Substance: IXAZOMIB
     Indication: PLASMA CELL MYELOMA
     Dosage: 4 MILLIGRAM
     Route: 048
     Dates: start: 20191108
  2. DEXAMETHASONE. [Concomitant]
     Active Substance: DEXAMETHASONE
     Dosage: UNK
  3. POMALIDOMIDE [Concomitant]
     Active Substance: POMALIDOMIDE
     Dosage: UNK

REACTIONS (2)
  - Dyspnoea [Unknown]
  - Pyrexia [Unknown]
